FAERS Safety Report 21366256 (Version 1)
Quarter: 2022Q3

REPORT INFORMATION
  Report Type: Spontaneous
  Country: US (occurrence: US)
  Receive Date: 20220922
  Receipt Date: 20220922
  Transmission Date: 20221027
  Serious: Yes (Life-Threatening)
  Sender: FDA-Public Use
  Company Number: US-PURDUE PHARMA-USA-2022-0291312

PATIENT
  Age: 52 Year
  Sex: Male

DRUGS (4)
  1. BUTRANS [Suspect]
     Active Substance: BUPRENORPHINE
     Indication: Back pain
     Dosage: 1 PATCH, WEEKLY
     Route: 061
     Dates: start: 20220208
  2. DOXAZOSIN [Concomitant]
     Active Substance: DOXAZOSIN MESYLATE
     Indication: Hypertension
     Dosage: 1.5 TABLET, DAILY
     Route: 048
  3. AMLODIPINE [Concomitant]
     Active Substance: AMLODIPINE BESYLATE
     Indication: Blood pressure measurement
     Dosage: 1 TABLET, DAILY
     Route: 048
  4. PANTOPRAZOLE [Concomitant]
     Active Substance: PANTOPRAZOLE
     Indication: Gastrooesophageal reflux disease
     Dosage: 1 TABLET, DAILY (20)
     Route: 048

REACTIONS (7)
  - Dyspnoea [Recovered/Resolved]
  - Palpitations [Recovered/Resolved]
  - Blood pressure increased [Recovered/Resolved]
  - Peripheral swelling [Recovered/Resolved]
  - Dizziness [Recovered/Resolved]
  - Swelling face [Recovered/Resolved]
  - Vision blurred [Recovered/Resolved]

NARRATIVE: CASE EVENT DATE: 20220209
